FAERS Safety Report 7753244-5 (Version None)
Quarter: 2011Q3

REPORT INFORMATION
  Report Type: 
  Country: None (occurrence: None)
  Receive Date: 20110915
  Receipt Date: 20110525
  Transmission Date: 20111222
  Serious: No
  Sender: FDA-Public Use
  Company Number: US-GLAXOSMITHKLINE-A0929122A

PATIENT
  Age: 34 Year
  Sex: Male

DRUGS (2)
  1. NICORETTE [Suspect]
     Indication: EX-TOBACCO USER
     Dates: start: 20110521
  2. NICORETTE (MINT) [Suspect]
     Indication: EX-TOBACCO USER
     Route: 002
     Dates: start: 20110521, end: 20110523

REACTIONS (7)
  - DISCOMFORT [None]
  - THROAT IRRITATION [None]
  - NICOTINE DEPENDENCE [None]
  - DRUG INEFFECTIVE [None]
  - DRUG ADMINISTRATION ERROR [None]
  - ORAL DISCOMFORT [None]
  - STOMATITIS [None]
